FAERS Safety Report 21947691 (Version 1)
Quarter: 2023Q1

REPORT INFORMATION
  Report Type: Spontaneous
  Country: US (occurrence: US)
  Receive Date: 20230203
  Receipt Date: 20230203
  Transmission Date: 20230417
  Serious: No
  Sender: FDA-Public Use
  Company Number: US-GSK-US2023011684

PATIENT
  Sex: Female
  Weight: 68.04 kg

DRUGS (1)
  1. BENLYSTA [Suspect]
     Active Substance: BELIMUMAB
     Indication: Product used for unknown indication
     Dosage: STARTED 5 YEARS AGO

REACTIONS (1)
  - Hypersensitivity [Recovered/Resolved]
